FAERS Safety Report 7769106-3 (Version None)
Quarter: 2011Q3

REPORT INFORMATION
  Report Type: 
  Country: None (occurrence: None)
  Receive Date: 20110922
  Receipt Date: 20110321
  Transmission Date: 20111222
  Serious: No
  Sender: FDA-Public Use
  Company Number: US-ASTRAZENECA-2011SE15973

PATIENT
  Age: 10175 Day
  Sex: Female
  Weight: 81.6 kg

DRUGS (1)
  1. SEROQUEL XR [Suspect]
     Route: 048

REACTIONS (2)
  - HEADACHE [None]
  - ACCIDENTAL EXPOSURE [None]
